FAERS Safety Report 12970733 (Version 1)
Quarter: 2016Q4

REPORT INFORMATION
  Report Type: Spontaneous
  Country: FR (occurrence: FR)
  Receive Date: 20161123
  Receipt Date: 20161123
  Transmission Date: 20170207
  Serious: Yes (Other)
  Sender: FDA-Public Use
  Company Number: FR-PFIZER INC-2016534551

PATIENT
  Age: 9 Year
  Sex: Female

DRUGS (2)
  1. ZOLOFT [Suspect]
     Active Substance: SERTRALINE HYDROCHLORIDE
     Indication: OBSESSIVE-COMPULSIVE DISORDER
     Dosage: 50 MG, 1X/DAY
     Route: 048
     Dates: start: 20140904
  2. MELATONIN [Concomitant]
     Active Substance: MELATONIN
     Indication: SLEEP DISORDER
     Dosage: 2 MG, DAILY (ACCORDING TO THE CYCLE)

REACTIONS (9)
  - Malaise [Recovered/Resolved]
  - Syncope [Recovered/Resolved]
  - Vision blurred [Recovered/Resolved]
  - Loss of consciousness [Recovered/Resolved]
  - Loss of consciousness [Recovered/Resolved]
  - Syncope [Recovered/Resolved]
  - Limb discomfort [Recovered/Resolved]
  - Fall [Recovered/Resolved]
  - Drug ineffective [Unknown]

NARRATIVE: CASE EVENT DATE: 201602
